FAERS Safety Report 23576163 (Version 3)
Quarter: 2025Q1

REPORT INFORMATION
  Report Type: Report from Study
  Country: US (occurrence: US)
  Receive Date: 20240228
  Receipt Date: 20250103
  Transmission Date: 20250409
  Serious: No
  Sender: GENMAB
  Company Number: US-GENMAB-2024-00400

PATIENT
  Age: 48 Year
  Sex: Male

DRUGS (1)
  1. EPKINLY [Suspect]
     Active Substance: EPCORITAMAB-BYSP
     Indication: Diffuse large B-cell lymphoma
     Route: 065
     Dates: end: 20240415

REACTIONS (7)
  - Swelling [Unknown]
  - Drug intolerance [Unknown]
  - Pain in extremity [Unknown]
  - Erythema [Unknown]
  - Skin exfoliation [Unknown]
  - Injection site erythema [Unknown]
  - Rash [Unknown]

NARRATIVE: CASE EVENT DATE: 20240208
